FAERS Safety Report 6608256-1 (Version None)
Quarter: 2010Q1

REPORT INFORMATION
  Report Type: 
  Country: None (occurrence: None)
  Receive Date: 20100212
  Receipt Date: 20100105
  Transmission Date: 20100710
  Serious: No
  Sender: FDA-Public Use
  Company Number: 1000011181

PATIENT
  Sex: Male

DRUGS (1)
  1. SAVELLA [Suspect]
     Dosage: (2 IN 1 D), ORAL; 25 MG (25 MG, 1 IN 1 D), ORAL
     Route: 048

REACTIONS (1)
  - HEADACHE [None]
